FAERS Safety Report 13143890 (Version 1)
Quarter: 2017Q1

REPORT INFORMATION
  Report Type: Spontaneous
  Country: CN (occurrence: CN)
  Receive Date: 20170124
  Receipt Date: 20170124
  Transmission Date: 20170428
  Serious: Yes (Other)
  Sender: FDA-Public Use
  Company Number: CN-GLAXOSMITHKLINE-CN2017GSK008931

PATIENT
  Age: 75 Year
  Sex: Male
  Weight: 57 kg

DRUGS (4)
  1. VOLTAREN [Suspect]
     Active Substance: DICLOFENAC SODIUM
     Indication: SEDATION
     Dosage: 25 MG, BID
     Route: 048
     Dates: start: 20161120, end: 20161120
  2. VOLTAREN [Suspect]
     Active Substance: DICLOFENAC SODIUM
     Indication: ANALGESIC THERAPY
  3. ASMETON [Concomitant]
     Active Substance: AMINOPHYLLINE\CHLORPHENIRAMINE MALEATE\METHOXYPHENAMINE HYDROCHLORIDE\NOSCAPINE
     Dosage: UNK
     Dates: start: 20161120, end: 20161120
  4. PENTOXYVERINE CITRATE [Concomitant]
     Active Substance: PENTOXYVERINE CITRATE
     Dosage: UNK
     Dates: start: 20161120, end: 20161120

REACTIONS (1)
  - Henoch-Schonlein purpura [Recovering/Resolving]

NARRATIVE: CASE EVENT DATE: 20161121
